FAERS Safety Report 21763141 (Version 1)
Quarter: 2022Q4

REPORT INFORMATION
  Report Type: Spontaneous
  Country: US (occurrence: US)
  Receive Date: 20221221
  Receipt Date: 20221221
  Transmission Date: 20230112
  Serious: No
  Sender: FDA-Public Use
  Company Number: US-SCYNEXIS, INC.-2022SCY000081

PATIENT
  Sex: Female
  Weight: 74 kg

DRUGS (1)
  1. BREXAFEMME [Suspect]
     Active Substance: IBREXAFUNGERP CITRATE
     Indication: Fungal infection
     Dosage: 150 MILLIGRAM, BID
     Route: 048
     Dates: start: 20221020, end: 20221020

REACTIONS (1)
  - Drug ineffective [Not Recovered/Not Resolved]
